FAERS Safety Report 8828027 (Version 3)
Quarter: 2013Q1

REPORT INFORMATION
  Report Type: Spontaneous
  Country: US (occurrence: US)
  Receive Date: 20121005
  Receipt Date: 20130123
  Transmission Date: 20140127
  Serious: Yes (Hospitalization, Other)
  Sender: FDA-Public Use
  Company Number: US-BAYER-2012-101561

PATIENT
  Age: 30 Year
  Sex: Female

DRUGS (8)
  1. YAZ [Suspect]
     Indication: ACNE
     Dosage: UNK
     Dates: start: 2009, end: 2010
  2. YAZ [Suspect]
     Indication: MENSTRUATION IRREGULAR
  3. YAZ [Suspect]
     Indication: PREMENSTRUAL SYNDROME
  4. YASMIN [Suspect]
     Indication: ACNE
     Dosage: UNK
     Dates: start: 2009, end: 2010
  5. YASMIN [Suspect]
     Indication: MENSTRUATION IRREGULAR
  6. YASMIN [Suspect]
     Indication: PREMENSTRUAL SYNDROME
  7. IBUPROFEN ORADRIL [Concomitant]
     Dosage: UNK
  8. TYLENOL [Concomitant]
     Indication: HEADACHE
     Dosage: UNK

REACTIONS (5)
  - Pulmonary embolism [None]
  - Thrombosis [None]
  - Injury [None]
  - Pain [None]
  - Emotional distress [None]
